FAERS Safety Report 10191711 (Version 1)
Quarter: 2014Q2

REPORT INFORMATION
  Report Type: Spontaneous
  Country: US (occurrence: None)
  Receive Date: 20140522
  Receipt Date: 20140522
  Transmission Date: 20141212
  Serious: Yes (Hospitalization)
  Sender: FDA-Public Use
  Company Number: None

PATIENT
  Age: 67 Year
  Sex: Female

DRUGS (4)
  1. IMBRUVICA [Suspect]
     Indication: LYMPHOMA
     Route: 048
     Dates: start: 20140305
  2. BARACLUDE [Concomitant]
  3. NEXIUM [Concomitant]
  4. LEVOTHYROXINE [Concomitant]

REACTIONS (2)
  - Investigation [None]
  - Therapy cessation [None]
